FAERS Safety Report 14786716 (Version 1)
Quarter: 2018Q2

REPORT INFORMATION
  Report Type: Spontaneous
  Country: US (occurrence: US)
  Receive Date: 20180420
  Receipt Date: 20180420
  Transmission Date: 20180711
  Serious: Yes (Hospitalization)
  Sender: FDA-Public Use
  Company Number: US-ACTELION-A-NJ2018-168996

PATIENT
  Age: 76 Year
  Sex: Female

DRUGS (12)
  1. OPSUMIT [Suspect]
     Active Substance: MACITENTAN
     Indication: PULMONARY ARTERIAL HYPERTENSION
     Dosage: 10 MG, QD
     Route: 048
  2. FUROSEMIDE. [Concomitant]
     Active Substance: FUROSEMIDE
  3. CARVEDILOL. [Concomitant]
     Active Substance: CARVEDILOL
  4. CENTRUM SILVER [Concomitant]
     Active Substance: MINERALS\VITAMINS
  5. OMEPRAZOLE. [Concomitant]
     Active Substance: OMEPRAZOLE
  6. VITAMIN A [Concomitant]
     Active Substance: VITAMIN A
  7. URSODIOL. [Concomitant]
     Active Substance: URSODIOL
  8. CALCIUM + VITAMIN D [Concomitant]
     Active Substance: CALCIUM\VITAMIN D
  9. IRON [Concomitant]
     Active Substance: IRON
  10. ADCIRCA [Concomitant]
     Active Substance: TADALAFIL
  11. RESTASIS [Concomitant]
     Active Substance: CYCLOSPORINE
  12. ASPIRIN. [Concomitant]
     Active Substance: ASPIRIN

REACTIONS (4)
  - Arrhythmia [Unknown]
  - Heart rate increased [Unknown]
  - Dyspnoea [Unknown]
  - Fibrin D dimer increased [Unknown]
